FAERS Safety Report 6485873-3 (Version None)
Quarter: 2009Q4

REPORT INFORMATION
  Report Type: 
  Country: None (occurrence: None)
  Receive Date: 20091204
  Receipt Date: 20091124
  Transmission Date: 20100525
  Serious: Yes (Hospitalization)
  Sender: FDA-Public Use
  Company Number: 2009US004182

PATIENT
  Age: 45 Year

DRUGS (16)
  1. VESICARE [Suspect]
     Indication: HYPERTONIC BLADDER
     Dosage: 10 MG, /D, ORAL
     Route: 048
     Dates: start: 20080101
  2. DIPHENOXYLATE (DIPHENOXYLATE) [Concomitant]
  3. TRAZODONE HCL [Concomitant]
  4. VALIUM [Concomitant]
  5. NITROFURANTOIN [Concomitant]
  6. ACTOS [Concomitant]
  7. LISINOPRIL [Concomitant]
  8. OMEGA-3 (SALMO SALAR OIL) [Concomitant]
  9. IMIPRAMINE [Concomitant]
  10. TOPAMAX [Concomitant]
  11. PREVACID [Concomitant]
  12. PROMETHAZINE [Concomitant]
  13. HYDROCODONE (HYDROCODONE) [Concomitant]
  14. METHENAMINE (METHENAMINE) [Concomitant]
  15. MAGNESIUM (MAGNESIUM SULFATE) [Concomitant]
  16. MAXALT [Concomitant]

REACTIONS (6)
  - BACK PAIN [None]
  - INSOMNIA [None]
  - RENAL DISORDER [None]
  - RENAL FAILURE [None]
  - SWELLING [None]
  - URINARY RETENTION [None]
